FAERS Safety Report 15259809 (Version 1)
Quarter: 2018Q3

REPORT INFORMATION
  Report Type: Spontaneous
  Country: GR (occurrence: GR)
  Receive Date: 20180809
  Receipt Date: 20180809
  Transmission Date: 20181010
  Serious: Yes (Other)
  Sender: FDA-Public Use
  Company Number: GR-LANNETT COMPANY, INC.-GR-2018LAN000920

PATIENT

DRUGS (4)
  1. MORPHINE SULFATE. [Suspect]
     Active Substance: MORPHINE SULFATE
     Indication: CANCER PAIN
     Dosage: 1.5?80 MG, QD
     Route: 008
  2. CLONIDINE. [Suspect]
     Active Substance: CLONIDINE
     Indication: CANCER PAIN
     Dosage: 75?600 MG, QD
     Route: 008
  3. BUPIVACAINE. [Suspect]
     Active Substance: BUPIVACAINE
     Indication: CANCER PAIN
     Dosage: 60?90 MG, QD
     Route: 008
  4. ROPIVACAINE [Suspect]
     Active Substance: ROPIVACAINE
     Indication: CANCER PAIN
     Dosage: 25?90 MG, QD
     Route: 008

REACTIONS (1)
  - Extradural abscess [Unknown]
